FAERS Safety Report 5643042-0 (Version None)
Quarter: 2008Q1

REPORT INFORMATION
  Report Type: 
  Country: None (occurrence: None)
  Receive Date: 20080227
  Receipt Date: 20080227
  Transmission Date: 20080703
  Serious: No
  Sender: FDA-Public Use
  Company Number: None

PATIENT
  Age: 60 Year
  Sex: Male

DRUGS (1)
  1. MOMETASONE FUROATE [Suspect]
     Indication: ASTHMA
     Dosage: 220MCG BID INHALE
     Route: 055
     Dates: start: 20061106, end: 20070914

REACTIONS (1)
  - FUNGAL SKIN INFECTION [None]
